FAERS Safety Report 5361913-X (Version None)
Quarter: 2007Q2

REPORT INFORMATION
  Report Type: 
  Country: None (occurrence: None)
  Receive Date: 20070530
  Receipt Date: 20070312
  Transmission Date: 20071010
  Serious: No
  Sender: FDA-Public Use
  Company Number: 2007PV031520

PATIENT
  Age: 49 Year
  Sex: Male
  Weight: 124.2856 kg

DRUGS (1)
  1. BYETTA [Suspect]
     Indication: WEIGHT DECREASED
     Dosage: 10 MCG;BID;SC
     Route: 058

REACTIONS (2)
  - LOCALISED INFECTION [None]
  - WEIGHT FLUCTUATION [None]
